FAERS Safety Report 4454233-9 (Version None)
Quarter: 2004Q3

REPORT INFORMATION
  Report Type: 
  Country: None (occurrence: None)
  Receive Date: 20040826
  Receipt Date: 20040610
  Transmission Date: 20050211
  Serious: No
  Sender: FDA-Public Use
  Company Number: WAES 0406USA01267

PATIENT
  Sex: Female

DRUGS (6)
  1. ZETIA [Suspect]
     Indication: BLOOD CHOLESTEROL INCREASED
     Dosage: 10 MG/DAILY/PO
     Route: 048
     Dates: start: 20031201
  2. COZAAR [Concomitant]
  3. GLUCOTROL [Concomitant]
  4. PEPCID [Concomitant]
  5. SYNTHROID [Concomitant]
  6. ZOCOR [Concomitant]

REACTIONS (2)
  - JOINT SWELLING [None]
  - MYALGIA [None]
